FAERS Safety Report 15836702 (Version 1)
Quarter: 2019Q1

REPORT INFORMATION
  Report Type: Spontaneous
  Country: DE (occurrence: DE)
  Receive Date: 20190117
  Receipt Date: 20190117
  Transmission Date: 20190417
  Serious: Yes (Life-Threatening, Other)
  Sender: FDA-Public Use
  Company Number: DE-IBIGEN-2019.05642

PATIENT
  Age: 55 Year
  Sex: Female
  Weight: 78 kg

DRUGS (1)
  1. PIPERACILLIN AND TAZOBACTAM [Suspect]
     Active Substance: PIPERACILLIN SODIUM\TAZOBACTAM SODIUM
     Indication: PNEUMONIA
     Dosage: 2X4,5 GR KURZINFUSION
     Route: 042

REACTIONS (2)
  - Thrombocytopenia [Recovered/Resolved with Sequelae]
  - Pulmonary haemorrhage [Unknown]

NARRATIVE: CASE EVENT DATE: 2018
